FAERS Safety Report 24398260 (Version 1)
Quarter: 2024Q4

REPORT INFORMATION
  Report Type: Spontaneous
  Country: AR (occurrence: AR)
  Receive Date: 20241004
  Receipt Date: 20241004
  Transmission Date: 20250115
  Serious: Yes (Other)
  Sender: GLAXOSMITHKLINE
  Company Number: AR-GSK-AR2024AMR120689

PATIENT

DRUGS (1)
  1. LAMICTAL [Suspect]
     Active Substance: LAMOTRIGINE
     Indication: Bipolar disorder
     Dosage: UNK

REACTIONS (1)
  - Renal failure [Unknown]
